FAERS Safety Report 7624110-0 (Version None)
Quarter: 2011Q3

REPORT INFORMATION
  Report Type: 
  Country: None (occurrence: None)
  Receive Date: 20110720
  Receipt Date: 20110706
  Transmission Date: 20111222
  Serious: Yes (Other)
  Sender: FDA-Public Use
  Company Number: NO-PFIZER INC-2011118084

PATIENT
  Age: 52 Year
  Sex: Female

DRUGS (3)
  1. PREDNISOLONE [Suspect]
     Indication: MIGRAINE
     Dosage: 2.5 MG - 5 MG DAILY
     Dates: start: 20110101
  2. CETIRIZINE [Concomitant]
     Indication: HYPERSENSITIVITY
     Dosage: 10 MG, 1X/DAY
  3. NEURONTIN [Suspect]
     Indication: MIGRAINE PROPHYLAXIS
     Dosage: 400MG+800MG+800MG DAILY
     Dates: start: 20110422

REACTIONS (3)
  - RASH PRURITIC [None]
  - GLOSSODYNIA [None]
  - OROPHARYNGEAL PAIN [None]
